FAERS Safety Report 4364858-7 (Version None)
Quarter: 2004Q2

REPORT INFORMATION
  Report Type: 
  Country: None (occurrence: None)
  Receive Date: 20040526
  Receipt Date: 20040414
  Transmission Date: 20050107
  Serious: Yes (Congenital Anomaly, Other)
  Sender: FDA-Public Use
  Company Number: 200414150GDDC

PATIENT
  Sex: Male
  Weight: 1.5 kg

DRUGS (1)
  1. ARAVA [Suspect]
     Indication: RHEUMATOID ARTHRITIS
     Dosage: DOSE: UNK
     Route: 064
     Dates: start: 20030401, end: 20030701

REACTIONS (4)
  - CONGENITAL CORNEAL ANOMALY [None]
  - DRUG EXPOSURE DURING PREGNANCY [None]
  - PREMATURE BABY [None]
  - VISUAL DISTURBANCE [None]
